FAERS Safety Report 25277680 (Version 1)
Quarter: 2025Q2

REPORT INFORMATION
  Report Type: Spontaneous
  Country: US (occurrence: US)
  Receive Date: 20250507
  Receipt Date: 20250507
  Transmission Date: 20250717
  Serious: No
  Sender: PFIZER
  Company Number: US-PFIZER INC-202500094676

PATIENT
  Age: 85 Year
  Sex: Female

DRUGS (16)
  1. XELJANZ XR [Suspect]
     Active Substance: TOFACITINIB CITRATE
  2. BISOPROLOL [Concomitant]
     Active Substance: BISOPROLOL
  3. ALCAFTADINE [Concomitant]
     Active Substance: ALCAFTADINE
  4. DORZOLAMIDE [Concomitant]
     Active Substance: DORZOLAMIDE
  5. LATANOPROST [Concomitant]
     Active Substance: LATANOPROST
  6. CHOLECALCIFEROL [Concomitant]
     Active Substance: CHOLECALCIFEROL
  7. BIFIDOBACTERIUM BIFIDUM [Concomitant]
     Active Substance: BIFIDOBACTERIUM BIFIDUM
  8. MAGNESIUM [Concomitant]
     Active Substance: MAGNESIUM
  9. ALENDRONATE [Concomitant]
     Active Substance: ALENDRONATE SODIUM
  10. HERBALS\PLANTAGO INDICA WHOLE [Concomitant]
     Active Substance: HERBALS\PLANTAGO INDICA WHOLE
  11. ROSUVASTATIN [Concomitant]
     Active Substance: ROSUVASTATIN
  12. AZELASTINE [Concomitant]
     Active Substance: AZELASTINE
  13. ASCORBIC ACID [Concomitant]
     Active Substance: ASCORBIC ACID
  14. ZINC [Concomitant]
     Active Substance: ZINC
  15. GUAIFENESIN [Concomitant]
     Active Substance: GUAIFENESIN
  16. CETIRIZINE [Concomitant]
     Active Substance: CETIRIZINE HYDROCHLORIDE

REACTIONS (1)
  - Nasopharyngitis [Unknown]
